FAERS Safety Report 8486953-3 (Version None)
Quarter: 2012Q3

REPORT INFORMATION
  Report Type: 
  Country: None (occurrence: None)
  Receive Date: 20120704
  Receipt Date: 20120628
  Transmission Date: 20120928
  Serious: Yes (Life-Threatening, Other)
  Sender: FDA-Public Use
  Company Number: US-AMGEN-USASP2012030011

PATIENT
  Age: 46 Year
  Sex: Female

DRUGS (2)
  1. EPOGEN [Suspect]
     Indication: RENAL FAILURE CHRONIC
     Dosage: 20000 IU, 3 TIMES/WK
     Dates: start: 20081031
  2. EPOGEN [Suspect]

REACTIONS (4)
  - REFRACTORY ANAEMIA [None]
  - THERAPEUTIC RESPONSE DECREASED [None]
  - BONE MARROW FAILURE [None]
  - MYELODYSPLASTIC SYNDROME [None]
